FAERS Safety Report 18124292 (Version 1)
Quarter: 2020Q3

REPORT INFORMATION
  Report Type: Spontaneous
  Country: US (occurrence: US)
  Receive Date: 20200807
  Receipt Date: 20200807
  Transmission Date: 20201103
  Serious: Yes (Hospitalization)
  Sender: FDA-Public Use
  Company Number: US-MYLANLABS-2020M1069868

PATIENT
  Sex: Male

DRUGS (11)
  1. MECLIZINE [Suspect]
     Active Substance: MECLIZINE HYDROCHLORIDE
     Indication: VOMITING
  2. OLANZAPINE. [Suspect]
     Active Substance: OLANZAPINE
     Indication: VOMITING
  3. OLANZAPINE. [Suspect]
     Active Substance: OLANZAPINE
     Indication: VERTIGO
  4. OLANZAPINE. [Suspect]
     Active Substance: OLANZAPINE
     Indication: NAUSEA
     Dosage: 2.5 MILLIGRAM, QD
     Route: 065
  5. ONDANSETRON [Suspect]
     Active Substance: ONDANSETRON
     Indication: NAUSEA
  6. PROCHLORPERAZINE. [Suspect]
     Active Substance: PROCHLORPERAZINE
     Indication: VOMITING
  7. MECLIZINE [Suspect]
     Active Substance: MECLIZINE HYDROCHLORIDE
     Indication: NAUSEA
     Route: 065
  8. SCOPOLAMINE [Suspect]
     Active Substance: SCOPOLAMINE
     Indication: VOMITING
     Route: 065
  9. PROCHLORPERAZINE. [Suspect]
     Active Substance: PROCHLORPERAZINE
     Indication: NAUSEA
     Route: 065
  10. SCOPOLAMINE [Suspect]
     Active Substance: SCOPOLAMINE
     Indication: NAUSEA
  11. ONDANSETRON [Suspect]
     Active Substance: ONDANSETRON
     Indication: VOMITING
     Route: 065

REACTIONS (2)
  - Therapy non-responder [Unknown]
  - Off label use [Unknown]
